FAERS Safety Report 10472930 (Version 1)
Quarter: 2014Q3

REPORT INFORMATION
  Report Type: Spontaneous
  Country: US (occurrence: US)
  Receive Date: 20140924
  Receipt Date: 20140924
  Transmission Date: 20150326
  Serious: Yes (Other)
  Sender: FDA-Public Use
  Company Number: US-ASTRAZENECA-2014SE69733

PATIENT
  Age: 7 Year
  Sex: Male
  Weight: 34.9 kg

DRUGS (10)
  1. QUETIAPINE FUMURATE [Suspect]
     Active Substance: QUETIAPINE FUMARATE
     Indication: AUTISM SPECTRUM DISORDER
     Route: 048
     Dates: start: 2013, end: 201407
  2. INTUNIVE [Concomitant]
     Indication: AUTISM SPECTRUM DISORDER
     Route: 048
     Dates: start: 2011
  3. INTUNIVE [Concomitant]
     Indication: ATTENTION DEFICIT/HYPERACTIVITY DISORDER
     Route: 048
     Dates: start: 2011
  4. ABILIFY [Concomitant]
     Active Substance: ARIPIPRAZOLE
     Indication: AUTISM SPECTRUM DISORDER
     Route: 048
     Dates: end: 20121225
  5. QUETIAPINE FUMURATE [Suspect]
     Active Substance: QUETIAPINE FUMARATE
     Indication: ATTENTION DEFICIT/HYPERACTIVITY DISORDER
     Route: 048
     Dates: start: 20140818, end: 20140914
  6. INTUNIVE [Concomitant]
     Indication: TIC
     Route: 048
     Dates: start: 2011
  7. QUETIAPINE FUMURATE [Suspect]
     Active Substance: QUETIAPINE FUMARATE
     Indication: ATTENTION DEFICIT/HYPERACTIVITY DISORDER
     Route: 048
     Dates: start: 2013, end: 201407
  8. HALDOL [Concomitant]
     Active Substance: HALOPERIDOL
     Indication: AUTISM SPECTRUM DISORDER
     Dosage: UNK
     Route: 048
     Dates: start: 201304
  9. HALDOL [Concomitant]
     Active Substance: HALOPERIDOL
     Indication: TIC
     Dosage: UNK
     Route: 048
     Dates: start: 201304
  10. QUETIAPINE FUMURATE [Suspect]
     Active Substance: QUETIAPINE FUMARATE
     Indication: AUTISM SPECTRUM DISORDER
     Route: 048
     Dates: start: 20140818, end: 20140914

REACTIONS (16)
  - Impulsive behaviour [Not Recovered/Not Resolved]
  - Tic [Unknown]
  - Musculoskeletal discomfort [Unknown]
  - Dystonia [Unknown]
  - Hyperaesthesia [Not Recovered/Not Resolved]
  - Irritability [Not Recovered/Not Resolved]
  - Tremor [Unknown]
  - Eye disorder [Unknown]
  - Intentional product misuse [Unknown]
  - Dysphonia [Not Recovered/Not Resolved]
  - Abnormal behaviour [Unknown]
  - Increased appetite [Not Recovered/Not Resolved]
  - Weight increased [Unknown]
  - Suicidal ideation [Unknown]
  - Aggression [Not Recovered/Not Resolved]
  - Off label use [Unknown]

NARRATIVE: CASE EVENT DATE: 201304
